FAERS Safety Report 15210165 (Version 8)
Quarter: 2018Q4

REPORT INFORMATION
  Report Type: Report from Study
  Country: CA (occurrence: CA)
  Receive Date: 20180727
  Receipt Date: 20181102
  Transmission Date: 20190204
  Serious: Yes (Hospitalization)
  Sender: FDA-Public Use
  Company Number: CA-TAKEDA-2018TUS004097

PATIENT
  Age: 36 Year
  Sex: Male

DRUGS (6)
  1. REMICADE [Suspect]
     Active Substance: INFLIXIMAB
     Indication: COLITIS ULCERATIVE
     Dosage: 5 MG, Q8WEEKS
     Route: 065
     Dates: start: 201803
  2. VEDOLIZUMAB [Suspect]
     Active Substance: VEDOLIZUMAB
     Indication: COLITIS ULCERATIVE
     Dosage: 300 MG, UNK
     Route: 042
     Dates: start: 20171118
  3. VEDOLIZUMAB [Suspect]
     Active Substance: VEDOLIZUMAB
     Dosage: 300 MG, UNK
     Route: 042
     Dates: start: 20180428, end: 20180922
  4. IRON [Concomitant]
     Active Substance: IRON
     Indication: MINERAL SUPPLEMENTATION
     Dosage: UNK
  5. PREDNISONE. [Concomitant]
     Active Substance: PREDNISONE
     Dosage: 10 MG, UNK
     Dates: start: 201612
  6. CORTENEMA [Concomitant]
     Active Substance: HYDROCORTISONE
     Dosage: UNK

REACTIONS (16)
  - C-reactive protein increased [Unknown]
  - Alanine aminotransferase increased [Unknown]
  - Bronchitis [Unknown]
  - Diarrhoea [Recovering/Resolving]
  - Haematochezia [Recovered/Resolved]
  - Weight decreased [Unknown]
  - Mean cell volume decreased [Unknown]
  - Diabetes mellitus [Recovering/Resolving]
  - Asthenia [Unknown]
  - Mucous stools [Recovered/Resolved]
  - Arthralgia [Unknown]
  - Colitis ulcerative [Not Recovered/Not Resolved]
  - Gastrointestinal inflammation [Unknown]
  - Hypophagia [Unknown]
  - Haemoglobin decreased [Unknown]
  - Platelet count increased [Unknown]

NARRATIVE: CASE EVENT DATE: 2018
